FAERS Safety Report 19144146 (Version 2)
Quarter: 2021Q2

REPORT INFORMATION
  Report Type: Spontaneous
  Country: US (occurrence: US)
  Receive Date: 20210416
  Receipt Date: 20210420
  Transmission Date: 20210717
  Serious: No
  Sender: FDA-Public Use
  Company Number: US-SA-2021SA121300

PATIENT
  Age: 87 Year
  Sex: Male

DRUGS (1)
  1. DUPIXENT [Suspect]
     Active Substance: DUPILUMAB
     Indication: ECZEMA
     Dosage: 300 MG, QOW
     Route: 058
     Dates: start: 20210224

REACTIONS (3)
  - Head injury [Unknown]
  - Fall [Unknown]
  - Haematoma [Unknown]

NARRATIVE: CASE EVENT DATE: 2021
